FAERS Safety Report 4320292-7 (Version None)
Quarter: 2004Q1

REPORT INFORMATION
  Report Type: 
  Country: None (occurrence: None)
  Receive Date: 20040317
  Receipt Date: 20040302
  Transmission Date: 20041129
  Serious: Yes (Hospitalization, Other)
  Sender: FDA-Public Use
  Company Number: FR-SHR-04-022406

PATIENT
  Age: 90 Year
  Sex: Female
  Weight: 45 kg

DRUGS (9)
  1. SOTALOL HCL [Suspect]
     Dosage: 120 MG, 1X/DAY, ORAL
     Route: 048
  2. NEO-MERCAZOLE TAB [Suspect]
     Indication: HYPERTHYROIDISM
     Dosage: 20 MG, 1X/DAY, ORAL
     Route: 048
     Dates: start: 20031210, end: 20040120
  3. TEMESTA /NET/(LORAZEPAM) [Suspect]
     Dosage: 1 MG, 1X/DAY, ORAL
     Route: 048
     Dates: end: 20040120
  4. COVERSYL(PERINDOPRIL) [Suspect]
     Dosage: 4 MG, 1X/DAY, ORAL
     Route: 048
     Dates: end: 20040120
  5. ALDACTAZINE(ALTIZIDE) TABLET [Suspect]
     Dosage: 3 TAB (S) PER WEEK, ORAL
     Route: 048
     Dates: end: 20040120
  6. LIPANTHYL BRISTOL-MYERS SQUIBB (FENOFIBRATE) [Suspect]
     Dosage: 200 MG, 1X/DAY, ORAL
     Route: 048
     Dates: end: 20040120
  7. ISOSORBIDE MONONITRATE [Suspect]
     Dosage: 20 MG, 1X/DAY, ORAL
     Route: 048
     Dates: end: 20040120
  8. POTASSIUM CHLORIDE [Suspect]
     Dosage: 1X/DAY, ORAL
     Route: 048
     Dates: end: 20040120
  9. CALCIUM W/VITAMIN D NOS(VITAMIN D NOS, CALCIUM) [Suspect]
     Dosage: ORAL
     Route: 048

REACTIONS (9)
  - AGRANULOCYTOSIS [None]
  - BLOOD CREATININE INCREASED [None]
  - BLOOD GLUCOSE INCREASED [None]
  - CALCULUS BLADDER [None]
  - FATIGUE [None]
  - HYPERBILIRUBINAEMIA [None]
  - JAUNDICE CHOLESTATIC [None]
  - PRURITUS [None]
  - RESTLESSNESS [None]
